FAERS Safety Report 5044156-9 (Version None)
Quarter: 2006Q3

REPORT INFORMATION
  Report Type: 
  Country: None (occurrence: None)
  Receive Date: 20060706
  Receipt Date: 20060623
  Transmission Date: 20061208
  Serious: Yes (Hospitalization)
  Sender: FDA-Public Use
  Company Number: 2006AP02981

PATIENT
  Age: 65 Year
  Sex: Female

DRUGS (6)
  1. XYLOCAINE [Suspect]
     Indication: LOCAL ANAESTHESIA
     Route: 042
     Dates: start: 20060612, end: 20060612
  2. XYLOCAINE [Suspect]
     Route: 042
     Dates: start: 20060615, end: 20060615
  3. XYLOCAINE [Suspect]
     Route: 042
     Dates: start: 20060619, end: 20060619
  4. RINDERON [Concomitant]
     Route: 042
     Dates: start: 20060612, end: 20060612
  5. RINDERON [Concomitant]
     Route: 042
     Dates: start: 20060615, end: 20060615
  6. RINDERON [Concomitant]
     Route: 042
     Dates: start: 20060619, end: 20060619

REACTIONS (2)
  - HYPOAESTHESIA [None]
  - MYOCARDIAL INFARCTION [None]
